FAERS Safety Report 7814089-0 (Version None)
Quarter: 2011Q4

REPORT INFORMATION
  Report Type: 
  Country: None (occurrence: None)
  Receive Date: 20111014
  Receipt Date: 20111005
  Transmission Date: 20120403
  Serious: Yes (Other)
  Sender: FDA-Public Use
  Company Number: JP-JNJFOC-20110601797

PATIENT
  Age: 7 Decade
  Sex: Male

DRUGS (3)
  1. ITRACONAZOLE [Suspect]
     Indication: PNEUMONIA
     Route: 048
  2. ITRACONAZOLE [Suspect]
     Dosage: 50-100 MG
     Route: 048
  3. DIGOXIN [Concomitant]
     Route: 065

REACTIONS (3)
  - OEDEMA [None]
  - VISUAL IMPAIRMENT [None]
  - CARDIAC FAILURE CONGESTIVE [None]
